FAERS Safety Report 7640300 (Version 9)
Quarter: 2012Q4

REPORT INFORMATION
  Report Type: 
  Country: US (occurrence: US)
  Receive Date: 20101026
  Receipt Date: 20121112
  Transmission Date: 20130627
  Serious: Yes (Hospitalization, Other)
  Sender: FDA-Public Use
  Company Number: US-ROCHE-717505

PATIENT
  Age: 41 None
  Sex: Male
  Weight: 77.1 kg

DRUGS (3)
  1. ACCUTANE [Suspect]
     Indication: ACNE
     Dosage: FOR 5 MONTHS
     Route: 065
  2. ACCUTANE [Suspect]
     Route: 065
     Dates: start: 199510, end: 199602
  3. ACCUTANE [Suspect]
     Route: 065
     Dates: start: 199608, end: 19961125

REACTIONS (14)
  - Pouchitis [Unknown]
  - Ankylosing spondylitis [Unknown]
  - Bronchitis [Unknown]
  - Oral herpes [Unknown]
  - Crohn^s disease [Unknown]
  - Colitis ulcerative [Unknown]
  - Inflammatory bowel disease [Unknown]
  - Anal fistula [Unknown]
  - Suicide attempt [Unknown]
  - Depression [Unknown]
  - Affective disorder [Unknown]
  - Suicidal ideation [Unknown]
  - Intestinal obstruction [Unknown]
  - Rectal abscess [Unknown]
